FAERS Safety Report 8669227 (Version 3)
Quarter: 2013Q4

REPORT INFORMATION
  Report Type: Spontaneous
  Country: US (occurrence: US)
  Receive Date: 20120717
  Receipt Date: 20131016
  Transmission Date: 20140711
  Serious: Yes (Other)
  Sender: FDA-Public Use
  Company Number: US-PFIZER INC-2012168239

PATIENT
  Age: 44 Year
  Sex: Female
  Weight: 113 kg

DRUGS (7)
  1. LYRICA [Suspect]
     Indication: SCIATICA
     Dosage: AUG2011 OR SEP2011 150 MG, 2X/DAY
     Route: 048
     Dates: start: 2011, end: 201204
  2. LYRICA [Suspect]
     Indication: PERIPHERAL NERVE INJURY
     Dosage: 150 MG, 2X/DAY
     Dates: start: 201204
  3. SINGULAIR [Concomitant]
     Indication: HYPERSENSITIVITY
     Dosage: 10 MG, 1X/DAY
  4. SINGULAIR [Concomitant]
     Indication: ASTHMA
  5. FLEXERIL [Concomitant]
     Dosage: 10 MG, 3X/DAY
  6. ZANAFLEX [Concomitant]
     Dosage: 4 MG, 3X/DAY
  7. TRAMADOL [Concomitant]
     Dosage: 50 MG, 2X/DAY

REACTIONS (11)
  - Thrombosis [Unknown]
  - Fibromyalgia [Unknown]
  - Pain [Unknown]
  - Gait disturbance [Unknown]
  - Musculoskeletal stiffness [Unknown]
  - Local swelling [Unknown]
  - Arthralgia [Unknown]
  - Peripheral coldness [Unknown]
  - Burning sensation [Unknown]
  - Nervous system disorder [Unknown]
  - Drug ineffective [Unknown]
